FAERS Safety Report 25147513 (Version 2)
Quarter: 2025Q3

REPORT INFORMATION
  Report Type: Spontaneous
  Country: EU (occurrence: EU)
  Receive Date: 20250402
  Receipt Date: 20250807
  Transmission Date: 20251020
  Serious: Yes (Death, Life-Threatening, Hospitalization, Disabling, Other)
  Sender: ACCORD
  Company Number: None

PATIENT
  Age: 68 Year
  Sex: Female
  Weight: 53 kg

DRUGS (8)
  1. DOCETAXEL [Suspect]
     Active Substance: DOCETAXEL
     Indication: HER2 positive breast cancer
     Dosage: 80MG/M2 EVERY 3 WEEKS TOGETHER WITH PHESGO DOSE: SECOND DOSE
     Dates: start: 20240425, end: 20240515
  2. EPIRUBICIN [Suspect]
     Active Substance: EPIRUBICIN
     Indication: HER2 positive breast cancer
     Dosage: 75MG/M2 EVERY 3 WEEKS DOSE: FIRST DOSE
     Dates: start: 20240626, end: 20240626
  3. CYCLOPHOSPHAMIDE [Suspect]
     Active Substance: CYCLOPHOSPHAMIDE
     Indication: HER2 positive breast cancer
     Dosage: 900MG/M2 EVERY 3 WEEKS DOSE: FIRST DOSE
     Dates: start: 20240626, end: 20240626
  4. PERTUZUMAB\TRASTUZUMAB [Suspect]
     Active Substance: PERTUZUMAB\TRASTUZUMAB
     Indication: HER2 positive breast cancer
     Dates: start: 20240425, end: 20240605
  5. PACLITAXEL [Suspect]
     Active Substance: PACLITAXEL
     Indication: HER2 positive breast cancer
     Dosage: 100MG/M SQ. WEEKLY AT C3 OF NEOADJUVANT TREATMENT DOSE: FIRST DOSE
     Dates: start: 20240605, end: 20240612
  6. PEGFILGRASTIM [Concomitant]
     Active Substance: PEGFILGRASTIM
     Dates: end: 20240626
  7. PERTUZUMAB\TRASTUZUMAB [Suspect]
     Active Substance: PERTUZUMAB\TRASTUZUMAB
     Indication: HER2 positive breast cancer
     Dosage: LATER 600/600 EVERY 3 WEEKS, TOGETHER WITH DOCETAXEL
  8. PERTUZUMAB\TRASTUZUMAB [Suspect]
     Active Substance: PERTUZUMAB\TRASTUZUMAB
     Indication: HER2 positive breast cancer
     Dates: start: 20240425, end: 20240605

REACTIONS (4)
  - Pneumonitis [Fatal]
  - Acute respiratory distress syndrome [Fatal]
  - Diffuse alveolar damage [Fatal]
  - Respiratory failure [Fatal]

NARRATIVE: CASE EVENT DATE: 20240710
